FAERS Safety Report 12257376 (Version 1)
Quarter: 2016Q2

REPORT INFORMATION
  Report Type: Spontaneous
  Country: US (occurrence: US)
  Receive Date: 20160412
  Receipt Date: 20160412
  Transmission Date: 20160815
  Serious: No
  Sender: FDA-Public Use
  Company Number: US-BAYER-2016-064099

PATIENT
  Age: 5 Year
  Sex: Female
  Weight: 17.69 kg

DRUGS (2)
  1. CHILDREN CLARITIN ALLERGY [Suspect]
     Active Substance: LORATADINE
     Indication: SEASONAL ALLERGY
     Dosage: 1 DF, UNK
     Dates: start: 20160330
  2. CHILDREN CLARITIN ALLERGY [Suspect]
     Active Substance: LORATADINE
     Indication: SEASONAL ALLERGY
     Dosage: 4 DF AROUND AT 2:28PM
     Dates: start: 20160331

REACTIONS (1)
  - Product use issue [None]

NARRATIVE: CASE EVENT DATE: 20160330
